FAERS Safety Report 15660788 (Version 1)
Quarter: 2018Q4

REPORT INFORMATION
  Report Type: Spontaneous
  Country: FR (occurrence: FR)
  Receive Date: 20181127
  Receipt Date: 20181127
  Transmission Date: 20190205
  Serious: Yes (Hospitalization, Other)
  Sender: FDA-Public Use
  Company Number: FR-PFIZER INC-2018487034

PATIENT
  Age: 79 Year
  Sex: Male
  Weight: 108 kg

DRUGS (8)
  1. NEORECORMON MULTIDOSE [Concomitant]
     Dosage: UNK
     Dates: start: 201710
  2. PAROXETINE. [Concomitant]
     Active Substance: PAROXETINE
     Dosage: UNK
  3. CORDARONE [Suspect]
     Active Substance: AMIODARONE HYDROCHLORIDE
     Indication: ATRIAL FIBRILLATION
     Dosage: 1 DF, DAILY
     Route: 048
     Dates: start: 20171026, end: 20180119
  4. REVLIMID [Suspect]
     Active Substance: LENALIDOMIDE
     Indication: PLASMA CELL MYELOMA
     Dosage: 1 DF, DAILY
     Route: 048
     Dates: start: 20171201, end: 201802
  5. SITAGLIPTINE [Concomitant]
     Active Substance: SITAGLIPTIN
     Dosage: UNK
  6. DEXAMETHASONE. [Concomitant]
     Active Substance: DEXAMETHASONE
     Dosage: UNK
     Dates: start: 20171205
  7. CLAMOXYL [AMOXICILLIN SODIUM] [Concomitant]
     Dosage: UNK
     Dates: start: 20171205
  8. INNOHEP [Concomitant]
     Active Substance: TINZAPARIN SODIUM
     Dosage: UNK
     Dates: start: 20171115

REACTIONS (5)
  - General physical health deterioration [Recovered/Resolved]
  - Cardiac failure [Not Recovered/Not Resolved]
  - Hyperthyroidism [Recovered/Resolved]
  - Lung disorder [Not Recovered/Not Resolved]
  - Weight decreased [Recovered/Resolved]

NARRATIVE: CASE EVENT DATE: 20171215
